FAERS Safety Report 7053063-1 (Version None)
Quarter: 2010Q4

REPORT INFORMATION
  Report Type: 
  Country: None (occurrence: None)
  Receive Date: 20101020
  Receipt Date: 20101011
  Transmission Date: 20110411
  Serious: No
  Sender: FDA-Public Use
  Company Number: KR-JNJFOC-20101003179

PATIENT
  Age: 68 Year
  Sex: Female

DRUGS (1)
  1. FENTANYL [Suspect]
     Indication: PAIN MANAGEMENT
     Route: 062

REACTIONS (2)
  - CONSTIPATION [None]
  - DRUG ADMINISTRATION ERROR [None]
